FAERS Safety Report 8816392 (Version 1)
Quarter: 2012Q4

REPORT INFORMATION
  Report Type: Spontaneous
  Country: AU (occurrence: None)
  Receive Date: 20120927
  Receipt Date: 20120927
  Transmission Date: 20130627
  Serious: Yes (Other)
  Sender: FDA-Public Use
  Company Number: 1414967

PATIENT
  Age: 56 Year
  Sex: Female
  Weight: 54.3 kg

DRUGS (3)
  1. GEMCITABINE HYDROCHLORIDE [Suspect]
     Dosage: 1560 mg x 4 doses (unknown)
     Route: 041
     Dates: start: 20120905
  2. GRANISETRON [Concomitant]
  3. DEXAMETHASONE [Concomitant]

REACTIONS (2)
  - Pain [None]
  - Infusion related reaction [None]
